FAERS Safety Report 7752328-5 (Version None)
Quarter: 2011Q3

REPORT INFORMATION
  Report Type: 
  Country: None (occurrence: None)
  Receive Date: 20110915
  Receipt Date: 20110901
  Transmission Date: 20111222
  Serious: Yes (Hospitalization, Other)
  Sender: FDA-Public Use
  Company Number: US-ELI_LILLY_AND_COMPANY-US201109002104

PATIENT
  Sex: Female
  Weight: 54.422 kg

DRUGS (9)
  1. ZONEGRAN [Concomitant]
     Dosage: 100 MG, EACH EVENING
  2. NUCYNTA [Concomitant]
     Indication: PAIN
     Dosage: 75 MG, PRN
     Route: 048
     Dates: start: 20100621, end: 20110830
  3. ZANAFLEX [Concomitant]
     Dosage: 4 MG, EVERY 8 HRS
     Route: 048
  4. MILNACIPRAN [Concomitant]
     Indication: FIBROMYALGIA
     Dosage: 50 MG, BID
     Route: 048
     Dates: start: 20090812, end: 20110830
  5. CYMBALTA [Suspect]
     Dosage: 60 MG, QD
     Route: 048
     Dates: start: 20110620
  6. PRILOSEC [Concomitant]
     Dosage: 40 MG, QD
     Route: 048
  7. MS CONTIN [Concomitant]
     Dosage: 15 MG, BID
     Route: 048
  8. CYMBALTA [Suspect]
     Dosage: 30 MG, QD
     Route: 048
     Dates: end: 20110830
  9. DAYPRO                                  /USA/ [Concomitant]
     Dosage: 1200 MG, QD
     Route: 048

REACTIONS (16)
  - ABNORMAL BEHAVIOUR [None]
  - BLOOD CREATINE PHOSPHOKINASE MB [None]
  - LEUKOCYTOSIS [None]
  - METABOLIC ACIDOSIS [None]
  - SEROTONIN SYNDROME [None]
  - DRUG INTERACTION [None]
  - CONFUSIONAL STATE [None]
  - RENAL FAILURE ACUTE [None]
  - FEELING ABNORMAL [None]
  - HAEMATURIA [None]
  - HYPERTENSION [None]
  - DEHYDRATION [None]
  - BODY TEMPERATURE DECREASED [None]
  - HYPOTENSION [None]
  - RHABDOMYOLYSIS [None]
  - HYPOKALAEMIA [None]
